FAERS Safety Report 8352371-1 (Version None)
Quarter: 2012Q2

REPORT INFORMATION
  Report Type: 
  Country: None (occurrence: None)
  Receive Date: 20120511
  Receipt Date: 20120509
  Transmission Date: 20120825
  Serious: Yes (Hospitalization, Other)
  Sender: FDA-Public Use
  Company Number: US-BAYER-2012-045280

PATIENT
  Age: 37 Year
  Sex: Male

DRUGS (1)
  1. BETASERON [Suspect]
     Indication: MULTIPLE SCLEROSIS
     Dosage: 4 MIU, QOD
     Route: 058
     Dates: start: 20120414

REACTIONS (4)
  - HYPOAESTHESIA [None]
  - DEHYDRATION [None]
  - PARAESTHESIA [None]
  - VOMITING [None]
